FAERS Safety Report 4643902-3 (Version None)
Quarter: 2005Q2

REPORT INFORMATION
  Report Type: 
  Country: None (occurrence: None)
  Receive Date: 20050425
  Receipt Date: 20050413
  Transmission Date: 20051028
  Serious: Yes (Other)
  Sender: FDA-Public Use
  Company Number: DE-BRISTOL-MYERS SQUIBB COMPANY-12933313

PATIENT
  Age: 60 Year
  Sex: Female

DRUGS (2)
  1. MAXIPIME [Suspect]
  2. CIPROFLOXACIN [Suspect]

REACTIONS (2)
  - TRANSAMINASES INCREASED [None]
  - TRANSIENT PSYCHOSIS [None]
